FAERS Safety Report 9738851 (Version 1)
Quarter: 2013Q4

REPORT INFORMATION
  Report Type: Spontaneous
  Country: US (occurrence: US)
  Receive Date: 20131209
  Receipt Date: 20131209
  Transmission Date: 20140711
  Serious: No
  Sender: FDA-Public Use
  Company Number: US-PFIZER INC-2013351215

PATIENT
  Sex: Female

DRUGS (1)
  1. LYRICA [Suspect]
     Indication: PAIN IN EXTREMITY
     Dosage: UNK, ONE CAPSULE IN MORNING AND TWO CAPSULES IN NIGHT

REACTIONS (3)
  - Dizziness [Unknown]
  - Disturbance in attention [Unknown]
  - Balance disorder [Unknown]
